FAERS Safety Report 5961722-4 (Version None)
Quarter: 2008Q4

REPORT INFORMATION
  Report Type: 
  Country: None (occurrence: None)
  Receive Date: 20081121
  Receipt Date: 20081110
  Transmission Date: 20090506
  Serious: Yes (Hospitalization)
  Sender: FDA-Public Use
  Company Number: US-BAXTER-2008BH000928

PATIENT
  Age: 50 Year
  Sex: Male

DRUGS (2)
  1. HEPARIN SODIUM INJECTION [Suspect]
     Indication: ANTICOAGULANT THERAPY
     Route: 065
     Dates: start: 20080125, end: 20080125
  2. HEPARIN SODIUM INJECTION [Suspect]
     Indication: CORONARY ARTERY DISEASE
     Route: 065
     Dates: start: 20080125, end: 20080125

REACTIONS (10)
  - BACK PAIN [None]
  - BRACHIAL PLEXUS INJURY [None]
  - COAGULOPATHY [None]
  - DEEP VEIN THROMBOSIS [None]
  - HYPOTENSION [None]
  - INCISION SITE COMPLICATION [None]
  - PAIN IN EXTREMITY [None]
  - RESPIRATORY DISORDER [None]
  - SWELLING [None]
  - THROMBOSIS PROPHYLAXIS [None]
